FAERS Safety Report 6760309-3 (Version None)
Quarter: 2010Q2

REPORT INFORMATION
  Report Type: 
  Country: None (occurrence: None)
  Receive Date: 20100608
  Receipt Date: 20100531
  Transmission Date: 20101027
  Serious: Yes (Death, Hospitalization, Other)
  Sender: FDA-Public Use
  Company Number: BE-MPIJNJ-2010-01637

PATIENT

DRUGS (4)
  1. VELCADE [Suspect]
     Indication: MULTIPLE MYELOMA
     Dosage: 1.3 MG/M2, CYCLIC
     Route: 042
     Dates: start: 20090618, end: 20090805
  2. MELPHALAN HYDROCHLORIDE [Concomitant]
     Indication: MULTIPLE MYELOMA
     Dosage: 50 MG, UNK
     Route: 048
     Dates: start: 20090615, end: 20090805
  3. MEDROL [Concomitant]
     Indication: MULTIPLE MYELOMA
     Dosage: 2 MG, UNK
     Route: 048
     Dates: start: 20090615, end: 20090805
  4. BISPHOSPHONATES [Concomitant]
     Indication: MULTIPLE MYELOMA

REACTIONS (2)
  - GUILLAIN-BARRE SYNDROME [None]
  - MULTIPLE MYELOMA [None]
